FAERS Safety Report 13726561 (Version 1)
Quarter: 2017Q3

REPORT INFORMATION
  Report Type: Spontaneous
  Country: FR (occurrence: FR)
  Receive Date: 20170707
  Receipt Date: 20170707
  Transmission Date: 20171127
  Serious: Yes (Other)
  Sender: FDA-Public Use
  Company Number: FR-BAYER-2017-128635

PATIENT
  Age: 34 Year
  Sex: Female

DRUGS (1)
  1. MIRENA [Suspect]
     Active Substance: LEVONORGESTREL
     Indication: CONTRACEPTION
     Dosage: 20 MCG/24HR, CONT
     Route: 015
     Dates: start: 20160510, end: 20170612

REACTIONS (8)
  - Loss of libido [Recovered/Resolved]
  - Hirsutism [Not Recovered/Not Resolved]
  - Hyperhidrosis [Recovering/Resolving]
  - Hypoaesthesia [Recovered/Resolved]
  - Urinary tract infection [Recovering/Resolving]
  - Anxiety [Recovered/Resolved]
  - Fatigue [Recovering/Resolving]
  - Irritability [Recovering/Resolving]

NARRATIVE: CASE EVENT DATE: 201606
